FAERS Safety Report 24022452 (Version 1)
Quarter: 2024Q2

REPORT INFORMATION
  Report Type: Report from Study
  Country: TR (occurrence: TR)
  Receive Date: 20240627
  Receipt Date: 20240627
  Transmission Date: 20240716
  Serious: No
  Sender: FDA-Public Use
  Company Number: TR-ROCHE-3553081

PATIENT
  Age: 69 Year
  Sex: Male
  Weight: 87.0 kg

DRUGS (5)
  1. ALECTINIB [Suspect]
     Active Substance: ALECTINIB
     Indication: Lung squamous cell carcinoma metastatic
     Route: 048
     Dates: start: 20210907
  2. GRANITRON [Concomitant]
     Dosage: 5 AMPULE
     Route: 042
     Dates: start: 20230727, end: 20230728
  3. EQICEFT [Concomitant]
     Route: 042
     Dates: start: 20230727, end: 20230728
  4. PANTOPRAZOLE SODIUM [Concomitant]
     Active Substance: PANTOPRAZOLE SODIUM
     Route: 048
     Dates: start: 20230727, end: 20230728
  5. ALECTINIB [Concomitant]
     Active Substance: ALECTINIB
     Dates: end: 20230727

REACTIONS (1)
  - Anaemia [Not Recovered/Not Resolved]

NARRATIVE: CASE EVENT DATE: 20230714
